FAERS Safety Report 9641132 (Version 2)
Quarter: 2013Q4

REPORT INFORMATION
  Report Type: Spontaneous
  Country: JP (occurrence: JP)
  Receive Date: 20131023
  Receipt Date: 20131030
  Transmission Date: 20140711
  Serious: Yes (Other)
  Sender: FDA-Public Use
  Company Number: JP-PFIZER INC-2013298015

PATIENT
  Age: 74 Year
  Sex: Male

DRUGS (1)
  1. LYRICA [Suspect]
     Dosage: 25 MG, 2X/DAY
     Route: 048

REACTIONS (2)
  - Drug interaction [Recovered/Resolved]
  - Anaesthetic complication [Recovered/Resolved]
